FAERS Safety Report 4693271-8 (Version None)
Quarter: 2005Q2

REPORT INFORMATION
  Report Type: 
  Country: None (occurrence: None)
  Receive Date: 20050617
  Receipt Date: 20050603
  Transmission Date: 20051028
  Serious: Yes (Hospitalization)
  Sender: FDA-Public Use
  Company Number: JP-MERCK-0506USA01488

PATIENT
  Age: 78 Year
  Sex: Female

DRUGS (5)
  1. PEPCID RPD [Suspect]
     Route: 048
     Dates: start: 20041101, end: 20050403
  2. CYANOCOBALAMIN [Concomitant]
     Route: 048
     Dates: start: 20041101
  3. VITAMIN E NICOTINATE [Concomitant]
     Route: 048
     Dates: start: 20041101
  4. [THERAPY UNSPECIFIED] [Concomitant]
     Route: 048
     Dates: start: 20041101
  5. FOSAMAX [Concomitant]
     Route: 048
     Dates: start: 20041101

REACTIONS (1)
  - ANAEMIA [None]
